FAERS Safety Report 15533636 (Version 1)
Quarter: 2018Q4

REPORT INFORMATION
  Report Type: Spontaneous
  Country: FR (occurrence: FR)
  Receive Date: 20181019
  Receipt Date: 20181019
  Transmission Date: 20190205
  Serious: Yes (Hospitalization)
  Sender: FDA-Public Use
  Company Number: FR-009507513-1810FRA003830

PATIENT
  Age: 71 Year
  Sex: Female
  Weight: 108 kg

DRUGS (10)
  1. ALLOPURINOL. [Concomitant]
     Active Substance: ALLOPURINOL
  2. KREDEX [Concomitant]
     Active Substance: CARVEDILOL
  3. CELESTENE [BETAMETHASONE] [Suspect]
     Active Substance: BETAMETHASONE
     Indication: ARTHROPOD BITE
     Dosage: 3 DF (6 MG), QD
     Route: 048
     Dates: start: 20180809, end: 20180812
  4. LORATADINE. [Concomitant]
     Active Substance: LORATADINE
  5. DOLIPRANE [Concomitant]
     Active Substance: ACETAMINOPHEN
  6. IZALGI [Concomitant]
     Active Substance: ACETAMINOPHEN\OPIUM
  7. CHOLECALCIFEROL [Concomitant]
     Active Substance: CHOLECALCIFEROL
     Dosage: STRENGTH: 500 MG/200 U.I.; TABLET TO BE SUCKED
  8. LIPANTHYL [Concomitant]
     Active Substance: FENOFIBRATE
     Dosage: STRENGTH: 200 MICRONIZED CAPSULE
  9. PREVISCAN (FLUINDIONE) [Suspect]
     Active Substance: FLUINDIONE
     Indication: ANTICOAGULANT THERAPY
     Dosage: TABLET EVEN DAY / 1 + 1 / 4 OF TABLET ODD DAY
     Route: 048
     Dates: end: 20180813
  10. ATACAND [Concomitant]
     Active Substance: CANDESARTAN CILEXETIL

REACTIONS (3)
  - Melaena [Recovered/Resolved]
  - Anaemia [Recovered/Resolved]
  - Gastrointestinal haemorrhage [Recovered/Resolved]

NARRATIVE: CASE EVENT DATE: 20180813
